FAERS Safety Report 8118759-9 (Version None)
Quarter: 2012Q1

REPORT INFORMATION
  Report Type: 
  Country: None (occurrence: None)
  Receive Date: 20120202
  Receipt Date: 20120124
  Transmission Date: 20120608
  Serious: Yes (Hospitalization)
  Sender: FDA-Public Use
  Company Number: CIP11003097

PATIENT
  Age: 84 Year
  Sex: Female

DRUGS (10)
  1. ALFAROL (ALFACALCIDOL) [Concomitant]
  2. RISEDRONATE SODIUM [Suspect]
     Dosage: ORAL
     Route: 048
     Dates: start: 20100401
  3. FERROMIA (FERROUS SODIULM CITRATE) [Concomitant]
  4. ETODOLAC [Concomitant]
  5. BUFFERIN [Concomitant]
  6. TIZANIN (TIZANIDINE HYDROCHLORIDE) [Concomitant]
  7. BLOPRESS (CANDESARTAN CILEXETIL) [Concomitant]
  8. DIART (AZOSEMIDE) [Concomitant]
  9. TENORMIN [Concomitant]
  10. OSTEN (IPRIFLAVONE) [Concomitant]

REACTIONS (16)
  - PURULENT DISCHARGE [None]
  - PARALYSIS [None]
  - BLOOD ALBUMIN DECREASED [None]
  - NO THERAPEUTIC RESPONSE [None]
  - OSTEOMYELITIS [None]
  - FACIAL PAIN [None]
  - INFLAMMATION [None]
  - EXPOSED BONE IN JAW [None]
  - SWELLING FACE [None]
  - HYPOAESTHESIA [None]
  - JOINT SWELLING [None]
  - NEUTROPHIL COUNT INCREASED [None]
  - BLOOD GLUCOSE INCREASED [None]
  - BLOOD CREATININE INCREASED [None]
  - CREATININE RENAL CLEARANCE DECREASED [None]
  - GLYCOSYLATED HAEMOGLOBIN INCREASED [None]
